FAERS Safety Report 18465546 (Version 1)
Quarter: 2020Q4

REPORT INFORMATION
  Report Type: Report from Study
  Country: US (occurrence: US)
  Receive Date: 20201105
  Receipt Date: 20201105
  Transmission Date: 20210114
  Serious: Yes (Other)
  Sender: FDA-Public Use
  Company Number: US-HORIZON-TEP-1978-2020

PATIENT
  Age: 68 Year
  Sex: Male

DRUGS (11)
  1. MORPHINEMORPHINEMORPHINE [Concomitant]
  2. THIAMINE D3THIAMINE D3THIAMINE D3 [Concomitant]
  3. ELIQUISELIQUISAPIXABAN [Concomitant]
  4. PREDNISONEPREDNISONEPREDNISONE [Concomitant]
     Dates: start: 202002
  5. PREGABALINPREGABALINPREGABALIN [Concomitant]
  6. SIMVASTATINSIMVASTATINSIMVASTATIN [Concomitant]
  7. HYDROCODONEHYDROCODONEHYDROCODONE [Concomitant]
  8. METOPROLOLMETOPROLOLMETOPROLOL [Concomitant]
  9. ALBUTEROLALBUTEROLALBUTEROL [Concomitant]
  10. TEPEZZA [Suspect]
     Active Substance: TEPROTUMUMAB-TRBW
     Indication: ENDOCRINE OPHTHALMOPATHY
     Dates: start: 202006
  11. OMEPRAZOLEOMEPRAZOLEOMEPRAZOLE [Concomitant]

REACTIONS (4)
  - Spinal pain [Recovering/Resolving]
  - Blepharospasm [Recovered/Resolved]
  - Muscle spasms [Recovering/Resolving]
  - Diabetes mellitus [Not Recovered/Not Resolved]

NARRATIVE: CASE EVENT DATE: 2020
